FAERS Safety Report 5133381-4 (Version None)
Quarter: 2006Q4

REPORT INFORMATION
  Report Type: 
  Country: None (occurrence: None)
  Receive Date: 20061024
  Receipt Date: 20061013
  Transmission Date: 20070319
  Serious: Yes (Hospitalization, Other)
  Sender: FDA-Public Use
  Company Number: CO-JNJFOC-20061003228

PATIENT
  Sex: Female

DRUGS (4)
  1. REMICADE [Suspect]
     Indication: RHEUMATOID ARTHRITIS
     Dosage: 18 INFUSIONS
     Route: 042
  2. DEFLAZACORT [Concomitant]
  3. MELOXICAM [Concomitant]
  4. CAPTOPRIL [Concomitant]

REACTIONS (1)
  - PULMONARY TUBERCULOSIS [None]
